FAERS Safety Report 9053850 (Version 2)
Quarter: 2013Q1

REPORT INFORMATION
  Report Type: Spontaneous
  Country: AU (occurrence: AU)
  Receive Date: 20130207
  Receipt Date: 20130208
  Transmission Date: 20140127
  Serious: Yes (Hospitalization)
  Sender: FDA-Public Use
  Company Number: AU-VIIV HEALTHCARE LIMITED-B0865753A

PATIENT
  Age: 47 None
  Sex: Male

DRUGS (2)
  1. CELSENTRI [Suspect]
     Indication: PRODUCT USED FOR UNKNOWN INDICATION
     Dosage: 150MG TWICE PER DAY
     Route: 065
     Dates: start: 20121222
  2. UNSPECIFIED MEDICATIONS [Concomitant]
     Route: 065

REACTIONS (3)
  - Hypersensitivity [Unknown]
  - Chest pain [Unknown]
  - Rash [Unknown]
